FAERS Safety Report 6900350-0 (Version None)
Quarter: 2010Q3

REPORT INFORMATION
  Report Type: 
  Country: None (occurrence: None)
  Receive Date: 20100803
  Receipt Date: 20100722
  Transmission Date: 20110219
  Serious: Yes (Other)
  Sender: FDA-Public Use
  Company Number: PHEH2009US02170

PATIENT
  Sex: Female

DRUGS (2)
  1. RECLAST [Suspect]
     Dosage: UNK
     Dates: start: 20080502
  2. FOSAMAX [Suspect]

REACTIONS (5)
  - BONE DENSITY DECREASED [None]
  - GAIT DISTURBANCE [None]
  - MUSCULOSKELETAL DISCOMFORT [None]
  - STRESS FRACTURE [None]
  - VITAMIN D DECREASED [None]
